FAERS Safety Report 8321588-4 (Version None)
Quarter: 2012Q2

REPORT INFORMATION
  Report Type: 
  Country: None (occurrence: None)
  Receive Date: 20120430
  Receipt Date: 20091015
  Transmission Date: 20120825
  Serious: No
  Sender: FDA-Public Use
  Company Number: US-TEVA-2009011533

PATIENT
  Sex: Female
  Weight: 59.928 kg

DRUGS (2)
  1. YASMIN [Concomitant]
     Indication: CONTRACEPTION
  2. NUVIGIL [Suspect]
     Indication: NARCOLEPSY
     Dosage: 250 MILLIGRAM;
     Route: 048
     Dates: start: 20090708, end: 20091117

REACTIONS (3)
  - MENORRHAGIA [None]
  - BREAST ATROPHY [None]
  - MENSTRUATION IRREGULAR [None]
